FAERS Safety Report 8124103 (Version 2)
Quarter: 2012Q4

REPORT INFORMATION
  Report Type: Report from Study
  Country: US (occurrence: US)
  Receive Date: 20110907
  Receipt Date: 20120912
  Transmission Date: 20130627
  Serious: Yes (Other)
  Sender: FDA-Public Use
  Company Number: US-ROCHE-799476

PATIENT
  Age: 0 Year
  Sex: Male
  Weight: 5.9 kg

DRUGS (1)
  1. VALCYTE [Suspect]
     Indication: CONGENITAL CYTOMEGALOVIRUS INFECTION
     Dosage: LAST DOSE PRIOR TO SAE ON 24 AUGUST 2011
     Route: 048

REACTIONS (7)
  - Thrombocytopenia [Not Recovered/Not Resolved]
  - Intraventricular haemorrhage [Not Recovered/Not Resolved]
  - Neutropenia [Not Recovered/Not Resolved]
  - Petechiae [Not Recovered/Not Resolved]
  - Hyperbilirubinaemia [Not Recovered/Not Resolved]
  - Cholestasis [Not Recovered/Not Resolved]
  - Anaemia [Recovered/Resolved]
